FAERS Safety Report 7186769-4 (Version None)
Quarter: 2010Q4

REPORT INFORMATION
  Report Type: 
  Country: None (occurrence: None)
  Receive Date: 20101222
  Receipt Date: 20100628
  Transmission Date: 20110411
  Serious: No
  Sender: FDA-Public Use
  Company Number: US-AMGEN-TCS420809

PATIENT

DRUGS (2)
  1. ENBREL [Suspect]
     Indication: RHEUMATOID ARTHRITIS
     Dosage: 25 MG, 2 TIMES/WK
     Dates: start: 20080729, end: 20100101
  2. ENBREL [Suspect]
     Dosage: 25 MG, 2 TIMES/WK
     Dates: start: 20080729, end: 20100101

REACTIONS (2)
  - BALANCE DISORDER [None]
  - NEUROPATHY PERIPHERAL [None]
